FAERS Safety Report 6585433-X (Version None)
Quarter: 2010Q1

REPORT INFORMATION
  Report Type: 
  Country: None (occurrence: None)
  Receive Date: 20100217
  Receipt Date: 20100209
  Transmission Date: 20100710
  Serious: Yes (Hospitalization)
  Sender: FDA-Public Use
  Company Number: B0632207A

PATIENT
  Sex: Female

DRUGS (5)
  1. DEROXAT [Suspect]
     Indication: MAJOR DEPRESSION
     Route: 048
     Dates: start: 20091020, end: 20091103
  2. PROZAC [Suspect]
     Indication: MAJOR DEPRESSION
     Route: 048
     Dates: start: 20091020, end: 20091029
  3. NORSET [Suspect]
     Indication: MAJOR DEPRESSION
     Dosage: 1UNIT PER DAY
     Route: 048
     Dates: start: 20091020, end: 20091104
  4. THERALENE [Suspect]
     Indication: MAJOR DEPRESSION
     Route: 048
     Dates: start: 20091020, end: 20091109
  5. LEXOMIL [Concomitant]
     Indication: MAJOR DEPRESSION
     Route: 048
     Dates: start: 20091020, end: 20091029

REACTIONS (2)
  - HEPATITIS CHOLESTATIC [None]
  - MIXED LIVER INJURY [None]
